FAERS Safety Report 5736353-1 (Version None)
Quarter: 2008Q2

REPORT INFORMATION
  Report Type: 
  Country: None (occurrence: None)
  Receive Date: 20080513
  Receipt Date: 20080505
  Transmission Date: 20081010
  Serious: Yes (Other)
  Sender: FDA-Public Use
  Company Number: US-ELI_LILLY_AND_COMPANY-US200805000821

PATIENT
  Age: 79 Year
  Sex: Female

DRUGS (10)
  1. HUMULIN R [Suspect]
  2. HUMULIN N [Suspect]
  3. PLAVIX [Concomitant]
  4. TOPROL-XL [Concomitant]
  5. ALTACE [Concomitant]
  6. SYNTHROID [Concomitant]
  7. IRON [Concomitant]
  8. POTASSIUM CHLORIDE [Concomitant]
  9. LASIX [Concomitant]
  10. IBUPROFEN TABLETS [Concomitant]

REACTIONS (10)
  - CARDIAC DISORDER [None]
  - CEREBROVASCULAR ACCIDENT [None]
  - CERVIX OPERATION [None]
  - COLON CANCER [None]
  - COLON OPERATION [None]
  - FACE INJURY [None]
  - FALL [None]
  - HYSTERECTOMY [None]
  - KNEE OPERATION [None]
  - SURGERY [None]
